FAERS Safety Report 13291095 (Version 1)
Quarter: 2017Q1

REPORT INFORMATION
  Report Type: Report from Study
  Country: JP (occurrence: JP)
  Receive Date: 20170302
  Receipt Date: 20170302
  Transmission Date: 20170428
  Serious: Yes (Death, Hospitalization)
  Sender: FDA-Public Use
  Company Number: JP-EISAI MEDICAL RESEARCH-EC-2017-025458

PATIENT
  Age: 67 Year
  Sex: Male
  Weight: 65 kg

DRUGS (1)
  1. HALAVEN [Suspect]
     Active Substance: ERIBULIN MESYLATE
     Indication: FIBROSARCOMA
     Route: 041
     Dates: start: 20160418, end: 20160425

REACTIONS (2)
  - Malignant neoplasm progression [Fatal]
  - Leukopenia [Recovered/Resolved]

NARRATIVE: CASE EVENT DATE: 20160426
